FAERS Safety Report 9867480 (Version 2)
Quarter: 2014Q2

REPORT INFORMATION
  Report Type: Spontaneous
  Country: GB (occurrence: GB)
  Receive Date: 20140204
  Receipt Date: 20140421
  Transmission Date: 20141212
  Serious: Yes (Disabling, Other)
  Sender: FDA-Public Use
  Company Number: GB-PFIZER INC-2014028111

PATIENT
  Age: 15 Year
  Sex: Female

DRUGS (5)
  1. SERTRALINE HCL [Suspect]
     Indication: DEPRESSION
     Dosage: 25 MG, 1X/DAY
     Route: 048
     Dates: start: 20140108, end: 20140113
  2. SERTRALINE HCL [Suspect]
     Dosage: 50 MG, UNK
     Route: 048
     Dates: start: 20140113, end: 20140116
  3. SERTRALINE HCL [Suspect]
     Dosage: 25 MG, UNK
     Route: 048
     Dates: start: 20140117, end: 20140118
  4. MELATONIN [Concomitant]
     Dosage: 6 MG, 1X/DAY (AT NIGHT)
     Dates: start: 201312
  5. QUETIAPINE [Concomitant]
     Dosage: 25 MG, 1X/DAY
     Dates: end: 20131219

REACTIONS (6)
  - Stevens-Johnson syndrome [Recovered/Resolved]
  - Lip swelling [Recovered/Resolved]
  - Swelling face [Recovered/Resolved]
  - Hypersensitivity [Unknown]
  - Mouth ulceration [Recovered/Resolved]
  - Dysphagia [Recovered/Resolved]
